FAERS Safety Report 5991796-6 (Version None)
Quarter: 2008Q4

REPORT INFORMATION
  Report Type: 
  Country: None (occurrence: None)
  Receive Date: 20081211
  Receipt Date: 20080507
  Transmission Date: 20090506
  Serious: No
  Sender: FDA-Public Use
  Company Number: US-AMGEN-KDL277238

PATIENT
  Sex: Female

DRUGS (5)
  1. ENBREL [Suspect]
     Indication: RHEUMATOID ARTHRITIS
     Route: 058
     Dates: start: 20071203
  2. METHOTREXATE [Concomitant]
     Route: 048
     Dates: start: 20030227
  3. FOLIC ACID [Concomitant]
     Dates: start: 20030227
  4. SYNTHROID [Concomitant]
  5. TENORMIN [Concomitant]

REACTIONS (4)
  - ABNORMAL SENSATION IN EYE [None]
  - DRY EYE [None]
  - INFLUENZA [None]
  - PHOTOPHOBIA [None]
